FAERS Safety Report 8061215-7 (Version None)
Quarter: 2012Q1

REPORT INFORMATION
  Report Type: 
  Country: None (occurrence: None)
  Receive Date: 20120120
  Receipt Date: 20110708
  Transmission Date: 20120608
  Serious: No
  Sender: FDA-Public Use
  Company Number: US-ALLERGAN-1109248US

PATIENT
  Age: 88 Year
  Sex: Female

DRUGS (1)
  1. RESTASIS [Suspect]
     Indication: PRODUCT USED FOR UNKNOWN INDICATION
     Dosage: UNK
     Route: 065

REACTIONS (2)
  - ABNORMAL SENSATION IN EYE [None]
  - EYE SWELLING [None]
